FAERS Safety Report 4639250-8 (Version None)
Quarter: 2005Q2

REPORT INFORMATION
  Report Type: 
  Country: None (occurrence: None)
  Receive Date: 20050419
  Receipt Date: 20030622
  Transmission Date: 20051028
  Serious: Yes (Other)
  Sender: FDA-Public Use
  Company Number: PHEH2003US05344

PATIENT
  Sex: Female

DRUGS (2)
  1. MIRALAX [Concomitant]
  2. ZELNORM [Suspect]

REACTIONS (2)
  - CHOLECYSTECTOMY [None]
  - DRUG INEFFECTIVE [None]
